FAERS Safety Report 13849023 (Version 1)
Quarter: 2017Q3

REPORT INFORMATION
  Report Type: Report from Study
  Country: US (occurrence: US)
  Receive Date: 20170809
  Receipt Date: 20170809
  Transmission Date: 20171127
  Serious: Yes (Death, Hospitalization)
  Sender: FDA-Public Use
  Company Number: US-TAIHO ONCOLOGY INC-EU-2017-00872

PATIENT
  Age: 75 Year
  Sex: Male
  Weight: 72.19 kg

DRUGS (10)
  1. GLIMEPIRIDE. [Concomitant]
     Active Substance: GLIMEPIRIDE
     Indication: TYPE 2 DIABETES MELLITUS
  2. MIRTAZAPINE. [Concomitant]
     Active Substance: MIRTAZAPINE
     Indication: DECREASED APPETITE
  3. QUINAPRIL. [Concomitant]
     Active Substance: QUINAPRIL
     Dosage: QHS
  4. WARFARIN [Concomitant]
     Active Substance: WARFARIN
     Indication: ATRIAL FIBRILLATION
     Dosage: NI
  5. CARVEDILOL. [Concomitant]
     Active Substance: CARVEDILOL
     Indication: CARDIAC DISORDER
     Dosage: WITH FOOD
  6. LOMOTIL [Concomitant]
     Active Substance: ATROPINE SULFATE\DIPHENOXYLATE HYDROCHLORIDE
     Indication: DIARRHOEA
     Dosage: UP TO 6 PILLS A DAY
  7. LASIX [Concomitant]
     Active Substance: FUROSEMIDE
  8. VALTREX [Concomitant]
     Active Substance: VALACYCLOVIR HYDROCHLORIDE
     Dosage: NI
  9. LONSURF [Suspect]
     Active Substance: TIPIRACIL HYDROCHLORIDE\TRIFLURIDINE
     Indication: COLON CANCER METASTATIC
     Dosage: CYCLE 2 STARTED ON 08JUN2017
     Route: 048
     Dates: start: 20170508, end: 20170519
  10. MIRTAZAPINE. [Concomitant]
     Active Substance: MIRTAZAPINE
     Indication: AFFECTIVE DISORDER
     Dosage: HS

REACTIONS (14)
  - Decreased appetite [Not Recovered/Not Resolved]
  - Dysgeusia [Unknown]
  - Asthenia [Unknown]
  - Blood glucose decreased [Unknown]
  - Anger [Unknown]
  - Pancreatic disorder [Unknown]
  - Incoherent [Unknown]
  - Gait disturbance [Unknown]
  - Death [Fatal]
  - Depressed level of consciousness [Unknown]
  - Herpes zoster [Not Recovered/Not Resolved]
  - Fatigue [Unknown]
  - Dehydration [Unknown]
  - Depression [Unknown]

NARRATIVE: CASE EVENT DATE: 2017
